FAERS Safety Report 8077032-8 (Version None)
Quarter: 2012Q1

REPORT INFORMATION
  Report Type: 
  Country: None (occurrence: None)
  Receive Date: 20120127
  Receipt Date: 20120118
  Transmission Date: 20120608
  Serious: Yes (Other)
  Sender: FDA-Public Use
  Company Number: PHHY2012BR004336

PATIENT
  Sex: Female

DRUGS (2)
  1. EXELON [Suspect]
     Indication: MEMORY IMPAIRMENT
     Dosage: 1 CAPSULE A DAY
  2. EXELON [Suspect]
     Dosage: 3 MG, BID

REACTIONS (6)
  - NEPHROLITHIASIS [None]
  - DRUG INTOLERANCE [None]
  - VOMITING [None]
  - MALAISE [None]
  - DIZZINESS [None]
  - NAUSEA [None]
